FAERS Safety Report 24590788 (Version 1)
Quarter: 2024Q4

REPORT INFORMATION
  Report Type: Other
  Country: KR (occurrence: KR)
  Receive Date: 20241107
  Receipt Date: 20241107
  Transmission Date: 20250114
  Serious: Yes (Hospitalization, Other)
  Sender: BIONPHARMA INC.
  Company Number: KR-Bion-014220

PATIENT
  Age: 40 Year
  Sex: Male

DRUGS (4)
  1. DEXAMETHASONE [Suspect]
     Active Substance: DEXAMETHASONE
     Indication: Back pain
     Dosage: 0.5MG AS EPIDURAL STEROID INJECTION
  2. LIDOCAINE [Concomitant]
     Active Substance: LIDOCAINE
     Indication: Back pain
     Dosage: 2% LIDOCAINE AT 1.3ML
  3. TRIAMCINOLONE [Concomitant]
     Active Substance: TRIAMCINOLONE
     Indication: Back pain
     Dosage: MIXED WITH SODIUM CHLORIDE AT A TOTAL VOLUME OF 16ML
  4. SODIUM CHLORIDE [Concomitant]
     Active Substance: SODIUM CHLORIDE
     Indication: Back pain

REACTIONS (3)
  - Product administration error [Unknown]
  - Spinal cord infarction [Recovering/Resolving]
  - Cauda equina syndrome [Recovering/Resolving]
